FAERS Safety Report 6729753-4 (Version None)
Quarter: 2010Q2

REPORT INFORMATION
  Report Type: 
  Country: None (occurrence: None)
  Receive Date: 20100513
  Receipt Date: 20100503
  Transmission Date: 20101027
  Serious: Yes (Other)
  Sender: FDA-Public Use
  Company Number: 2009SP040434

PATIENT
  Sex: Female

DRUGS (5)
  1. PEG-INTRON [Suspect]
     Indication: HEPATITIS C
     Dosage: 100 MCG;QD
     Dates: start: 20090902, end: 20100227
  2. REBETOL [Suspect]
     Indication: HEPATITIS C
     Dosage: 1000 MG;QD, 800 MG;QD
     Dates: start: 20090910, end: 20100227
  3. REBETOL [Suspect]
     Indication: HEPATITIS C
     Dosage: 1000 MG;QD, 800 MG;QD
     Dates: start: 20090908
  4. CIPRAMIL [Concomitant]
  5. PARACETAMOL [Concomitant]

REACTIONS (5)
  - LACERATION [None]
  - MUCOSAL DRYNESS [None]
  - MUCOUS MEMBRANE DISORDER [None]
  - NAUSEA [None]
  - VOMITING [None]
